FAERS Safety Report 14946066 (Version 2)
Quarter: 2018Q2

REPORT INFORMATION
  Report Type: Spontaneous
  Country: FR (occurrence: FR)
  Receive Date: 20180529
  Receipt Date: 20180614
  Transmission Date: 20180711
  Serious: Yes (Hospitalization, Other)
  Sender: FDA-Public Use
  Company Number: FR-STRIDES ARCOLAB LIMITED-2018SP000324

PATIENT

DRUGS (1)
  1. VANCOMYCIN [Suspect]
     Active Substance: VANCOMYCIN
     Indication: ANTIBIOTIC THERAPY
     Dosage: 25 G, TOTAL
     Route: 042

REACTIONS (6)
  - Anuria [Recovered/Resolved]
  - Accidental overdose [Recovered/Resolved]
  - Oliguria [Recovered/Resolved]
  - Renal failure [Recovered/Resolved]
  - Medication error [Unknown]
  - Toxicity to various agents [Unknown]
